FAERS Safety Report 4403815-9 (Version None)
Quarter: 2004Q3

REPORT INFORMATION
  Report Type: 
  Country: None (occurrence: None)
  Receive Date: 20040719
  Receipt Date: 20040706
  Transmission Date: 20050211
  Serious: Yes (Other)
  Sender: FDA-Public Use
  Company Number: 20031915531E

PATIENT
  Sex: Female

DRUGS (2)
  1. CELEBREX [Suspect]
     Indication: SPINAL CORD NEOPLASM
     Dosage: 400 MG, QD, ORAL
     Route: 048
  2. ZOLEDRONIC ACID(ZOLEDRONIC ACID) [Suspect]
     Indication: METASTASES TO BONE
     Dates: start: 20030909

REACTIONS (2)
  - DRUG INTERACTION [None]
  - RENAL FAILURE [None]
